FAERS Safety Report 14315978 (Version 1)
Quarter: 2017Q4

REPORT INFORMATION
  Report Type: Spontaneous
  Country: SE (occurrence: SE)
  Receive Date: 20171221
  Receipt Date: 20171221
  Transmission Date: 20180321
  Serious: Yes (Other)
  Sender: FDA-Public Use
  Company Number: SE-MYLANLABS-2017M1080324

PATIENT
  Age: 67 Year
  Sex: Female

DRUGS (1)
  1. BISOPROLOL [Suspect]
     Active Substance: BISOPROLOL
     Indication: PRODUCT USED FOR UNKNOWN INDICATION
     Dosage: STRENGTH: 10 MG

REACTIONS (5)
  - Product substitution issue [Unknown]
  - Insomnia [Unknown]
  - Discomfort [Unknown]
  - Anxiety [Unknown]
  - Extrasystoles [Unknown]
